FAERS Safety Report 18589938 (Version 1)
Quarter: 2020Q4

REPORT INFORMATION
  Report Type: Spontaneous
  Country: US (occurrence: US)
  Receive Date: 20201207
  Receipt Date: 20201207
  Transmission Date: 20210114
  Serious: Yes (Hospitalization)
  Sender: FDA-Public Use
  Company Number: None

PATIENT
  Sex: Male

DRUGS (13)
  1. COUMADIN [Concomitant]
     Active Substance: WARFARIN SODIUM
  2. MYRBETRIQ [Concomitant]
     Active Substance: MIRABEGRON
  3. VITAMIN B12 [Concomitant]
     Active Substance: CYANOCOBALAMIN
  4. CENTRUM [Concomitant]
     Active Substance: VITAMINS
  5. PYRIDIUM [Concomitant]
     Active Substance: PHENAZOPYRIDINE
  6. DIGITEK [Concomitant]
     Active Substance: DIGOXIN
  7. FOLIC ACID. [Concomitant]
     Active Substance: FOLIC ACID
  8. XALATN [Concomitant]
  9. VOLTAREN [Concomitant]
     Active Substance: DICLOFENAC SODIUM
  10. BEPREVE [Concomitant]
     Active Substance: BEPOTASTINE BESILATE
  11. DILTIAZEM. [Concomitant]
     Active Substance: DILTIAZEM
  12. SUCRALFATE. [Concomitant]
     Active Substance: SUCRALFATE
  13. PROMACTA [Suspect]
     Active Substance: ELTROMBOPAG OLAMINE
     Indication: IMMUNE THROMBOCYTOPENIA
     Route: 048
     Dates: start: 20171230

REACTIONS (2)
  - Urinary tract infection [None]
  - Drug resistance [None]
